FAERS Safety Report 5636631-0 (Version None)
Quarter: 2008Q1

REPORT INFORMATION
  Report Type: 
  Country: None (occurrence: None)
  Receive Date: 20080219
  Receipt Date: 20080219
  Transmission Date: 20080703
  Serious: Yes (Other)
  Sender: FDA-Public Use
  Company Number: None

PATIENT
  Age: 44 Year
  Sex: Female
  Weight: 45.3597 kg

DRUGS (2)
  1. ASPIRIN [Suspect]
     Indication: ISCHAEMIC HEART DISEASE PROPHYLAXIS
     Dosage: 81 MG, QD, ORAL
     Route: 048
     Dates: end: 20071211
  2. ONE A DAY WOMEN'S [Suspect]
     Indication: VITAMIN SUPPLEMENTATION
     Dosage: QD, ORAL
     Route: 048
     Dates: start: 20071101, end: 20071210

REACTIONS (2)
  - CONDITION AGGRAVATED [None]
  - UTERINE LEIOMYOMA [None]
